FAERS Safety Report 6968486-6 (Version None)
Quarter: 2010Q3

REPORT INFORMATION
  Report Type: 
  Country: None (occurrence: None)
  Receive Date: 20100907
  Receipt Date: 20100903
  Transmission Date: 20110219
  Serious: Yes (Death, Other)
  Sender: FDA-Public Use
  Company Number: PHHO2010MX13465

PATIENT
  Sex: Male
  Weight: 55 kg

DRUGS (1)
  1. AFINITOR [Suspect]
     Indication: METASTATIC RENAL CELL CARCINOMA
     Dosage: 5MG/DAY
     Route: 048
     Dates: start: 20100721, end: 20100830

REACTIONS (9)
  - ANAEMIA [None]
  - ASTHENIA [None]
  - AZOTAEMIA [None]
  - DEHYDRATION [None]
  - ELECTROLYTE IMBALANCE [None]
  - GENERAL PHYSICAL HEALTH DETERIORATION [None]
  - LEUKOCYTOSIS [None]
  - NEUTROPHILIA [None]
  - RENAL FAILURE [None]
